FAERS Safety Report 9834973 (Version 1)
Quarter: 2014Q1

REPORT INFORMATION
  Report Type: Spontaneous
  Country: DE (occurrence: DE)
  Receive Date: 20140122
  Receipt Date: 20140122
  Transmission Date: 20141002
  Serious: Yes (Other)
  Sender: FDA-Public Use
  Company Number: DE-GILEAD-2014-0092491

PATIENT
  Age: 30 Year
  Sex: Female
  Weight: 61 kg

DRUGS (4)
  1. TRUVADA [Suspect]
     Indication: HIV TEST POSITIVE
     Dosage: UNK
     Route: 048
  2. LOPINAVIR + RITONAVIR [Concomitant]
     Indication: HIV TEST POSITIVE
     Dosage: UNK
     Route: 048
  3. PYRAZINAMID [Concomitant]
     Indication: PULMONARY TUBERCULOSIS
     Route: 048
  4. ETHAMBUTOL [Concomitant]
     Indication: PULMONARY TUBERCULOSIS

REACTIONS (2)
  - Pulmonary tuberculosis [Unknown]
  - Exposure during pregnancy [Recovered/Resolved]
